FAERS Safety Report 5395341-8 (Version None)
Quarter: 2007Q3

REPORT INFORMATION
  Report Type: 
  Country: None (occurrence: None)
  Receive Date: 20070724
  Receipt Date: 20070720
  Transmission Date: 20080115
  Serious: Yes (Hospitalization, Other)
  Sender: FDA-Public Use
  Company Number: DEWYE751230MAY07

PATIENT
  Sex: Female
  Weight: 56 kg

DRUGS (4)
  1. VENLAFAXINE HCL [Suspect]
     Indication: DEPRESSION
     Dosage: 75 - 175 MG DAILY
     Route: 048
     Dates: start: 20070401, end: 20070601
  2. VENLAFAXINE HCL [Suspect]
     Indication: ANXIETY
  3. SALMETIN ROTADISK [Concomitant]
  4. SALBUTAMOL [Concomitant]

REACTIONS (20)
  - AGITATION [None]
  - ANXIETY [None]
  - DISTURBANCE IN ATTENTION [None]
  - EMOTIONAL DISORDER [None]
  - EPISTAXIS [None]
  - FATIGUE [None]
  - HAEMOPTYSIS [None]
  - HYPERHIDROSIS [None]
  - MOTOR DYSFUNCTION [None]
  - MUSCLE SPASMS [None]
  - MUSCLE TWITCHING [None]
  - NERVOUSNESS [None]
  - NIGHTMARE [None]
  - PANIC REACTION [None]
  - SUFFOCATION FEELING [None]
  - SUICIDAL IDEATION [None]
  - TENSION [None]
  - TINNITUS [None]
  - TREMOR [None]
  - VAGINAL HAEMORRHAGE [None]
